FAERS Safety Report 6150410-X (Version None)
Quarter: 2009Q2

REPORT INFORMATION
  Report Type: 
  Country: None (occurrence: None)
  Receive Date: 20090409
  Receipt Date: 20090407
  Transmission Date: 20091009
  Serious: Yes (Hospitalization, Other)
  Sender: FDA-Public Use
  Company Number: US-BRISTOL-MYERS SQUIBB COMPANY-14557888

PATIENT
  Age: 56 Year
  Sex: Female
  Weight: 71 kg

DRUGS (3)
  1. CETUXIMAB [Suspect]
     Indication: TRANSITIONAL CELL CARCINOMA
     Dosage: D1 + D15 OF 28D CYCLE, STARTED ON 04-FEB-2009
     Route: 042
     Dates: start: 20090304, end: 20090304
  2. CISPLATIN [Suspect]
     Indication: TRANSITIONAL CELL CARCINOMA
  3. GEMCITABINE [Suspect]
     Indication: BLADDER TRANSITIONAL CELL CARCINOMA
     Dosage: D1,15 + 21 OF 28D CYCLE , STARTED ON 04-FEB-2009
     Dates: start: 20090311, end: 20090311

REACTIONS (2)
  - DEEP VEIN THROMBOSIS [None]
  - PULMONARY EMBOLISM [None]
